FAERS Safety Report 6519837-8 (Version None)
Quarter: 2009Q4

REPORT INFORMATION
  Report Type: 
  Country: None (occurrence: None)
  Receive Date: 20091228
  Receipt Date: 20091228
  Transmission Date: 20100525
  Serious: Yes (Other)
  Sender: FDA-Public Use
  Company Number: None

PATIENT
  Sex: Female
  Weight: 49.8957 kg

DRUGS (1)
  1. WELLBUTRIN XL [Suspect]
     Indication: DEPRESSION
     Dosage: 1 TAB DAILY FOR 90 DAYS
     Dates: start: 20090409

REACTIONS (5)
  - ANXIETY [None]
  - DEPRESSION [None]
  - IRRITABILITY [None]
  - POOR QUALITY SLEEP [None]
  - PRODUCT SUBSTITUTION ISSUE [None]
